FAERS Safety Report 6098574-0 (Version None)
Quarter: 2009Q1

REPORT INFORMATION
  Report Type: 
  Country: None (occurrence: None)
  Receive Date: 20090302
  Receipt Date: 20090225
  Transmission Date: 20090719
  Serious: Yes (Life-Threatening, Hospitalization, Disabling, Other)
  Sender: FDA-Public Use
  Company Number: CA-ASTRAZENECA-2008UW17780

PATIENT
  Age: 69 Year
  Sex: Female

DRUGS (3)
  1. ZD1839 [Suspect]
     Dosage: 250MG
     Route: 048
     Dates: start: 20060524
  2. NOLVADEX [Suspect]
     Dosage: 20MG
     Route: 048
     Dates: start: 20080524
  3. TYLENOL SINUS [Concomitant]
     Indication: SEASONAL ALLERGY
     Dates: start: 20010101

REACTIONS (2)
  - MEDIASTINAL FIBROSIS [None]
  - VENA CAVA INJURY [None]
